FAERS Safety Report 6692411-9 (Version None)
Quarter: 2010Q2

REPORT INFORMATION
  Report Type: 
  Country: None (occurrence: None)
  Receive Date: 20100422
  Receipt Date: 20100421
  Transmission Date: 20101027
  Serious: Yes (Hospitalization)
  Sender: FDA-Public Use
  Company Number: GXKR2009DE08346

PATIENT
  Age: 25 Year
  Sex: Female
  Weight: 51 kg

DRUGS (7)
  1. CLARITHROMYCIN [Suspect]
     Indication: RESPIRATORY TRACT INFECTION
     Dosage: 250 MG, BID
     Route: 048
     Dates: start: 20090119, end: 20090125
  2. METRONIDAZOLE [Suspect]
     Indication: CLOSTRIDIUM COLITIS
     Dosage: 400 MG, TID
     Route: 048
     Dates: start: 20090401, end: 20090410
  3. VALETTE [Concomitant]
     Indication: CONTRACEPTION
  4. SALOFALK ^AVENTIS^ [Concomitant]
  5. PREDNISOLON [Concomitant]
  6. PANTOZOL [Concomitant]
     Indication: PROPHYLAXIS
  7. FERROUS SULFATE TAB [Concomitant]
     Indication: IRON DEFICIENCY ANAEMIA

REACTIONS (2)
  - GASTROENTERITIS CLOSTRIDIAL [None]
  - PSEUDOMEMBRANOUS COLITIS [None]
